FAERS Safety Report 20878517 (Version 1)
Quarter: 2022Q2

REPORT INFORMATION
  Report Type: Other
  Country: US (occurrence: None)
  Receive Date: 20220526
  Receipt Date: 20220526
  Transmission Date: 20220721
  Serious: Yes (Life-Threatening, Hospitalization, Other)
  Sender: FDA-Public Use
  Company Number: US-Merck Healthcare KGaA-9324414

PATIENT
  Age: 48 Year
  Sex: Female

DRUGS (1)
  1. METFORMIN HYDROCHLORIDE [Suspect]
     Active Substance: METFORMIN HYDROCHLORIDE
     Indication: Type 2 diabetes mellitus

REACTIONS (4)
  - Diabetic ketoacidosis [Recovered/Resolved]
  - Cardiac arrest [Recovering/Resolving]
  - Lactic acidosis [Recovered/Resolved]
  - Contraindicated product administered [Unknown]
